FAERS Safety Report 16324344 (Version 1)
Quarter: 2019Q2

REPORT INFORMATION
  Report Type: Spontaneous
  Country: US (occurrence: US)
  Receive Date: 20190516
  Receipt Date: 20190516
  Transmission Date: 20190711
  Serious: Yes (Hospitalization)
  Sender: FDA-Public Use
  Company Number: None

PATIENT
  Age: 60 Year
  Sex: Male

DRUGS (7)
  1. ASPIRIN. [Concomitant]
     Active Substance: ASPIRIN
  2. PROPRANOL OL [Concomitant]
     Active Substance: PROPRANOLOL HYDROCHLORIDE
  3. FAMOTIDINE. [Concomitant]
     Active Substance: FAMOTIDINE
  4. NALTREXONE [Concomitant]
     Active Substance: NALTREXONE
  5. SOFOS/VELPAT [Suspect]
     Active Substance: SOFOSBUVIR\VELPATASVIR
     Indication: HEPATITIS
     Route: 048
     Dates: start: 20190423
  6. ISOSORBIDE. [Concomitant]
     Active Substance: ISOSORBIDE
  7. LISINOPRIL. [Concomitant]
     Active Substance: LISINOPRIL

REACTIONS (2)
  - Cardiac disorder [None]
  - Blood pressure abnormal [None]

NARRATIVE: CASE EVENT DATE: 20190515
